FAERS Safety Report 10159819 (Version 2)
Quarter: 2014Q2

REPORT INFORMATION
  Report Type: Spontaneous
  Country: US (occurrence: US)
  Receive Date: 20140508
  Receipt Date: 20140508
  Transmission Date: 20141212
  Serious: Yes (Hospitalization)
  Sender: FDA-Public Use
  Company Number: US-GILEAD-2014-0101593

PATIENT
  Age: 46 Year
  Sex: Male

DRUGS (5)
  1. LETAIRIS [Suspect]
     Indication: PRODUCT USED FOR UNKNOWN INDICATION
     Route: 065
     Dates: start: 20130104
  2. REMODULIN [Concomitant]
  3. SILDENAFIL [Concomitant]
  4. REVATIO [Concomitant]
  5. OXYGEN [Concomitant]

REACTIONS (2)
  - Oxygen saturation decreased [Unknown]
  - Blood glucose decreased [Unknown]
